FAERS Safety Report 24366600 (Version 1)
Quarter: 2024Q3

REPORT INFORMATION
  Report Type: Spontaneous
  Country: DE (occurrence: DE)
  Receive Date: 20240926
  Receipt Date: 20240926
  Transmission Date: 20241016
  Serious: Yes (Life-Threatening, Other)
  Sender: SANOFI AVENTIS
  Company Number: DE-EMA-DD-20181003-hjainp-114416

PATIENT
  Age: 59 Year
  Sex: Female

DRUGS (11)
  1. ANTI-THYMOCYTE GLOBULIN (RABBIT) NOS [Suspect]
     Active Substance: LAPINE T-LYMPHOCYTE IMMUNE GLOBULIN
     Indication: Bone marrow conditioning regimen
     Dosage: 720 MG, QD
     Route: 042
     Dates: start: 20150615, end: 20150617
  2. FLUDARABINE PHOSPHATE [Suspect]
     Active Substance: FLUDARABINE PHOSPHATE
     Indication: Bone marrow conditioning regimen
     Dosage: 55 MG, QD
     Route: 042
     Dates: start: 20150613, end: 20150617
  3. CYTARABINE [Suspect]
     Active Substance: CYTARABINE
     Indication: Acute myeloid leukaemia
     Dosage: 180 MG, QD
     Route: 042
     Dates: start: 20150106, end: 20150112
  4. CYTARABINE [Suspect]
     Active Substance: CYTARABINE
     Dosage: 190 MG, QD
     Route: 042
     Dates: start: 20141128, end: 20141204
  5. IDARUBICIN [Suspect]
     Active Substance: IDARUBICIN
     Indication: Acute myeloid leukaemia
     Dosage: 22.8 MG, QD
     Route: 042
     Dates: start: 20141128, end: 20141128
  6. IDARUBICIN [Suspect]
     Active Substance: IDARUBICIN
     Dosage: 22.8 MG, QD
     Route: 042
     Dates: start: 20141130, end: 20141130
  7. IDARUBICIN [Suspect]
     Active Substance: IDARUBICIN
     Dosage: 22.8 MG, QD
     Route: 042
     Dates: start: 20141202, end: 20141202
  8. IDARUBICIN [Suspect]
     Active Substance: IDARUBICIN
     Dosage: 21.6 MG, QD
     Route: 042
     Dates: start: 20150108, end: 20150108
  9. IDARUBICIN [Suspect]
     Active Substance: IDARUBICIN
     Dosage: 21.6 MG, QD
     Route: 042
     Dates: start: 20150106, end: 20150106
  10. IDARUBICIN [Suspect]
     Active Substance: IDARUBICIN
     Dosage: 21.6 MG, QD
     Route: 042
     Dates: start: 20150110, end: 20150110
  11. BUSULFAN [Suspect]
     Active Substance: BUSULFAN
     Indication: Bone marrow conditioning regimen
     Dosage: 232 MG, QD
     Route: 042
     Dates: start: 20150615, end: 20150616

REACTIONS (1)
  - Second primary malignancy [Recovered/Resolved]

NARRATIVE: CASE EVENT DATE: 20170727
